FAERS Safety Report 6616887-8 (Version None)
Quarter: 2010Q1

REPORT INFORMATION
  Report Type: 
  Country: None (occurrence: None)
  Receive Date: 20100301
  Receipt Date: 20100218
  Transmission Date: 20100710
  Serious: Yes (Hospitalization, Other)
  Sender: FDA-Public Use
  Company Number: 2010SP010274

PATIENT
  Age: 67 Year
  Sex: Male
  Weight: 98 kg

DRUGS (10)
  1. MIRTAZAPINE [Suspect]
     Indication: DEPRESSION
     Dosage: 15 MG;QD;PO
     Route: 048
     Dates: start: 20090925, end: 20091005
  2. METFORMIN HCL [Suspect]
     Indication: DIABETES MELLITUS
     Dosage: 850 MG;QD;PO
     Route: 048
     Dates: end: 20091005
  3. XIMOVAN (ZOPICLONE) [Suspect]
     Indication: DRUG USE FOR UNKNOWN INDICATION
     Dosage: 7.5 MG;QD;PO
     Route: 048
     Dates: start: 20090916, end: 20091005
  4. VOLTAREN [Suspect]
     Indication: ANALGESIC THERAPY
     Dosage: 50 MG;QD;PO
     Route: 048
     Dates: start: 20090928, end: 20091005
  5. PANTOPRAZOLE [Suspect]
     Indication: DRUG USE FOR UNKNOWN INDICATION
     Dosage: 20 MG;QD;PO
     Route: 048
     Dates: start: 20090928, end: 20091005
  6. CITALOPRAM HYDROBROMIDE [Concomitant]
  7. ASPIRIN [Concomitant]
  8. BELOC [Concomitant]
  9. RAMIPRIL [Concomitant]
  10. SPIRONOLACTONE [Concomitant]

REACTIONS (7)
  - CHOLESTASIS [None]
  - CHOLESTATIC LIVER INJURY [None]
  - DEPRESSION [None]
  - EOSINOPHIL PERCENTAGE DECREASED [None]
  - HEPATIC CIRRHOSIS [None]
  - JAUNDICE [None]
  - PROTHROMBIN TIME PROLONGED [None]
